FAERS Safety Report 5743835-5 (Version None)
Quarter: 2008Q2

REPORT INFORMATION
  Report Type: 
  Country: None (occurrence: None)
  Receive Date: 20080519
  Receipt Date: 20080519
  Transmission Date: 20081010
  Serious: Yes (Life-Threatening, Hospitalization)
  Sender: FDA-Public Use
  Company Number: None

PATIENT
  Age: 37 Year
  Sex: Female
  Weight: 31.7518 kg

DRUGS (2)
  1. PROPOFOL [Suspect]
     Indication: ANAESTHESIA
     Dosage: DURING SURGERY IV BOLUS
     Route: 040
     Dates: start: 20080101, end: 20080101
  2. PROPOFOL [Suspect]
     Indication: ANAESTHESIA
     Dosage: DURING SURGERY IV BOLUS
     Route: 040
     Dates: start: 20000201, end: 20080201

REACTIONS (8)
  - ABDOMINAL DISTENSION [None]
  - ABDOMINAL PAIN [None]
  - DYSPNOEA [None]
  - MUSCULOSKELETAL PAIN [None]
  - NEPHROLITHIASIS [None]
  - PANCREATITIS [None]
  - POST PROCEDURAL COMPLICATION [None]
  - VOMITING [None]
